FAERS Safety Report 6782603-2 (Version None)
Quarter: 2010Q2

REPORT INFORMATION
  Report Type: 
  Country: None (occurrence: None)
  Receive Date: 20100621
  Receipt Date: 20100609
  Transmission Date: 20101027
  Serious: Yes (Other)
  Sender: FDA-Public Use
  Company Number: CA-PFIZER INC-2010072210

PATIENT
  Sex: Female

DRUGS (1)
  1. DILANTIN [Suspect]
     Dosage: 400 MG DAILY
     Dates: start: 19630101

REACTIONS (8)
  - DECREASED APPETITE [None]
  - DRUG LEVEL FLUCTUATING [None]
  - DRUG TOXICITY [None]
  - FEELING ABNORMAL [None]
  - INCORRECT DRUG DOSAGE FORM ADMINISTERED [None]
  - LETHARGY [None]
  - PAIN [None]
  - PHOBIA OF DRIVING [None]
